FAERS Safety Report 8451397-7 (Version None)
Quarter: 2012Q2

REPORT INFORMATION
  Report Type: 
  Country: None (occurrence: None)
  Receive Date: 20120620
  Receipt Date: 20120227
  Transmission Date: 20120825
  Serious: No
  Sender: FDA-Public Use
  Company Number: US-VERTEX PHARMACEUTICALS INC.-AE-2012-002863

PATIENT
  Sex: Female
  Weight: 41.768 kg

DRUGS (6)
  1. CALCIUM [Concomitant]
  2. INCIVEK [Suspect]
     Indication: HEPATITIS C
     Route: 048
     Dates: start: 20120208
  3. RIBAVIRIN [Concomitant]
     Indication: HEPATITIS C
     Dates: start: 20120208
  4. MULTI-VITAMIN [Concomitant]
  5. IRON [Concomitant]
  6. PEGASYS [Concomitant]
     Indication: HEPATITIS C
     Dates: start: 20120208

REACTIONS (3)
  - NAUSEA [None]
  - HEADACHE [None]
  - FLATULENCE [None]
